FAERS Safety Report 8245101-5 (Version None)
Quarter: 2012Q1

REPORT INFORMATION
  Report Type: 
  Country: None (occurrence: None)
  Receive Date: 20120329
  Receipt Date: 20120323
  Transmission Date: 20120608
  Serious: Yes (Death, Hospitalization)
  Sender: FDA-Public Use
  Company Number: JP-GLAXOSMITHKLINE-B0777802A

PATIENT
  Sex: Male
  Weight: 76 kg

DRUGS (30)
  1. PROMACTA [Suspect]
     Dosage: 25MG PER DAY
     Route: 048
     Dates: start: 20110615, end: 20110727
  2. OXYCONTIN [Suspect]
     Indication: CANCER PAIN
     Dosage: 30MG PER DAY
     Route: 048
     Dates: start: 20120131, end: 20120301
  3. TS-1 [Suspect]
     Dosage: 100MG PER DAY
     Dates: start: 20120119, end: 20120124
  4. UNKNOWN DRUG [Concomitant]
     Indication: ADENOCARCINOMA PANCREAS
     Route: 065
  5. TRAMADOL HYDROCHLORIDE [Concomitant]
     Route: 048
     Dates: start: 20120112
  6. MAGMITT [Concomitant]
     Dosage: 660MG PER DAY
     Route: 048
     Dates: start: 20120112
  7. INDOMETHACIN [Concomitant]
     Route: 061
     Dates: start: 20111222
  8. TS-1 [Suspect]
     Dosage: 100MG PER DAY
     Dates: start: 20110915, end: 20110929
  9. TS-1 [Suspect]
     Dosage: 100MG PER DAY
     Dates: start: 20111222, end: 20120105
  10. GEMCITABINE [Concomitant]
     Dosage: 1850MG PER DAY
     Route: 042
     Dates: start: 20110622, end: 20110622
  11. PROMACTA [Suspect]
     Dosage: 31.25MG PER DAY
     Route: 048
     Dates: start: 20110915, end: 20120124
  12. TS-1 [Suspect]
     Dosage: 100MG PER DAY
     Dates: start: 20110707, end: 20110721
  13. HYALEIN [Concomitant]
     Route: 031
  14. LENDORMIN [Concomitant]
     Dosage: .25MG PER DAY
     Route: 048
     Dates: start: 20110607
  15. SOLU-CORTEF [Concomitant]
     Dosage: 100MG PER DAY
     Dates: start: 20110628, end: 20110628
  16. LANSOPRAZOLE [Concomitant]
     Dosage: 30MG PER DAY
     Route: 048
  17. LOXONIN [Concomitant]
     Dosage: 120MG PER DAY
     Route: 048
     Dates: start: 20111007
  18. PROMACTA [Suspect]
     Indication: IDIOPATHIC THROMBOCYTOPENIC PURPURA
     Dosage: 12.5MG PER DAY
     Route: 048
     Dates: start: 20110530, end: 20110614
  19. TS-1 [Suspect]
     Dosage: 100MG PER DAY
     Dates: start: 20110825, end: 20110908
  20. TS-1 [Suspect]
     Dosage: 100MG PER DAY
     Dates: start: 20111007, end: 20111021
  21. TS-1 [Suspect]
     Dosage: 100MG PER DAY
     Dates: start: 20111117, end: 20111201
  22. LOXONIN [Concomitant]
     Dosage: 180MG PER DAY
     Route: 048
     Dates: end: 20111006
  23. DIOVAN [Concomitant]
     Dosage: 80MG PER DAY
     Route: 048
  24. MORPHINE [Concomitant]
     Indication: CANCER PAIN
     Route: 048
     Dates: start: 20120124, end: 20120130
  25. PROMACTA [Suspect]
     Dosage: 37.5MG PER DAY
     Route: 048
     Dates: start: 20110728, end: 20110914
  26. TS-1 [Suspect]
     Dosage: 100MG PER DAY
     Dates: start: 20110804, end: 20110818
  27. TS-1 [Suspect]
     Dosage: 100MG PER DAY
     Dates: start: 20111027, end: 20111110
  28. TS-1 [Suspect]
     Dosage: 100MG PER DAY
     Dates: start: 20111208, end: 20111222
  29. ADONA (AC-17) [Concomitant]
     Indication: HAEMORRHAGE PROPHYLAXIS
     Dosage: 90MG PER DAY
     Route: 048
     Dates: start: 20110629, end: 20110707
  30. PRIMPERAN TAB [Concomitant]
     Dosage: 10MG PER DAY
     Dates: start: 20111108, end: 20111108

REACTIONS (2)
  - RESPIRATORY FAILURE [None]
  - PULMONARY EMBOLISM [None]
